FAERS Safety Report 9125830 (Version 1)
Quarter: 2013Q1

REPORT INFORMATION
  Report Type: Spontaneous
  Country: US (occurrence: US)
  Receive Date: 20130228
  Receipt Date: 20130228
  Transmission Date: 20140127
  Serious: Yes (Hospitalization)
  Sender: FDA-Public Use
  Company Number: US-MYLANLABS-2013S1003529

PATIENT
  Age: 4 Year
  Sex: Male

DRUGS (1)
  1. ATENOLOL [Suspect]
     Indication: SUPRAVENTRICULAR TACHYCARDIA
     Dosage: ABOUT 1 MG/KG DAY DIVIDED TWICE DAILY (4.25ML PER DOSE) OF A 2 MG/ML SOLUTION
     Route: 065

REACTIONS (3)
  - Atrioventricular block [Recovered/Resolved]
  - Overdose [Recovered/Resolved]
  - Wrong technique in drug usage process [Recovered/Resolved]
